FAERS Safety Report 4603309-1 (Version None)
Quarter: 2005Q1

REPORT INFORMATION
  Report Type: 
  Country: None (occurrence: None)
  Receive Date: 20050307
  Receipt Date: 20050228
  Transmission Date: 20050727
  Serious: Yes (Other)
  Sender: FDA-Public Use
  Company Number: 2005017394

PATIENT
  Age: 53 Year
  Sex: Male
  Weight: 36.2878 kg

DRUGS (4)
  1. LIPITOR [Suspect]
     Indication: DYSLIPIDAEMIA
     Dosage: 10 MG )10 MG, 1 IN 1 D), ORAL
     Route: 048
     Dates: start: 20001018, end: 20030901
  2. TRIZIVIR (ABCAVIR SULFATE, LAMIVUDINE, ZIDOVUDINE) [Concomitant]
  3. EFAVIRENZ (EFAVIRENZ) [Concomitant]
  4. NEVIRAPINE [Concomitant]

REACTIONS (2)
  - CHOLELITHIASIS [None]
  - PANCREATIC ENZYMES INCREASED [None]
